FAERS Safety Report 6311921-7 (Version None)
Quarter: 2009Q3

REPORT INFORMATION
  Report Type: 
  Country: None (occurrence: None)
  Receive Date: 20090817
  Receipt Date: 20090812
  Transmission Date: 20100115
  Serious: Yes (Hospitalization)
  Sender: FDA-Public Use
  Company Number: FR-BRISTOL-MYERS SQUIBB COMPANY-14739312

PATIENT
  Age: 35 Year
  Sex: Male

DRUGS (4)
  1. AMIKLIN [Suspect]
     Indication: FEBRILE BONE MARROW APLASIA
     Dates: start: 20090714, end: 20090722
  2. LITAK [Suspect]
     Indication: HAIRY CELL LEUKAEMIA
     Dosage: 1 DF- 2MG/ML;24JUN09-IST INJ.1JUL09-IIND INJ;7JUL09-IIIRD INJ;13JUL09-IVTH INJ
     Route: 058
     Dates: start: 20090624, end: 20090713
  3. TAZOCILLINE [Suspect]
     Indication: FEBRILE BONE MARROW APLASIA
     Dates: start: 20090714, end: 20090722
  4. ACUPAN [Suspect]
     Dates: start: 20090720, end: 20090722

REACTIONS (1)
  - TOXIC SKIN ERUPTION [None]
